FAERS Safety Report 10289981 (Version 2)
Quarter: 2014Q3

REPORT INFORMATION
  Report Type: Spontaneous
  Country: JP (occurrence: JP)
  Receive Date: 20140710
  Receipt Date: 20140728
  Transmission Date: 20150326
  Serious: Yes (Other)
  Sender: FDA-Public Use
  Company Number: JP-SA-2014SA091090

PATIENT
  Age: 60 Year
  Sex: Male

DRUGS (1)
  1. BCG FOR IMMUNOTHERAPY [Suspect]
     Active Substance: BCG VACCINE
     Indication: BLADDER CANCER
     Route: 065

REACTIONS (7)
  - Inflammation [Unknown]
  - Granuloma [Unknown]
  - Dysuria [Unknown]
  - Nephritis [Unknown]
  - Pollakiuria [Unknown]
  - Haematuria [Unknown]
  - Pyrexia [Unknown]
